FAERS Safety Report 15435914 (Version 1)
Quarter: 2018Q3

REPORT INFORMATION
  Report Type: Spontaneous
  Country: US (occurrence: US)
  Receive Date: 20180924
  Receipt Date: 20180924
  Transmission Date: 20181010
  Serious: Yes (Other)
  Sender: FDA-Public Use
  Company Number: None

PATIENT
  Age: 32 Year
  Sex: Female
  Weight: 76.66 kg

DRUGS (1)
  1. MIRENA [Suspect]
     Active Substance: LEVONORGESTREL
     Dates: start: 20170701, end: 20180831

REACTIONS (6)
  - Headache [None]
  - Insomnia [None]
  - Panic attack [None]
  - Cystitis [None]
  - Anxiety [None]
  - Neck pain [None]

NARRATIVE: CASE EVENT DATE: 20170701
